FAERS Safety Report 20951869 (Version 2)
Quarter: 2022Q2

REPORT INFORMATION
  Report Type: Spontaneous
  Country: CA (occurrence: CA)
  Receive Date: 20220613
  Receipt Date: 20220629
  Transmission Date: 20220721
  Serious: Yes (Other)
  Sender: FDA-Public Use
  Company Number: CA-PFIZER INC-202200709157

PATIENT
  Age: 54 Year
  Sex: Male
  Weight: 132 kg

DRUGS (2)
  1. RUXIENCE [Suspect]
     Active Substance: RITUXIMAB-PVVR
     Indication: Granulomatosis with polyangiitis
     Dosage: 1000 MG, DAY 1 AND 15
     Route: 042
     Dates: start: 20220607
  2. RUXIENCE [Suspect]
     Active Substance: RITUXIMAB-PVVR
     Indication: Microscopic polyangiitis
     Dosage: 1000 MG, DAY 1 AND 15 (SUBSEQUENT INFUSION 2 WEEKS 2 DAYS AFTER FIRST INFUSION)
     Route: 042
     Dates: start: 20220623

REACTIONS (8)
  - Pruritus [Recovering/Resolving]
  - Ocular hyperaemia [Recovered/Resolved]
  - Dysphonia [Recovered/Resolved]
  - Tension headache [Recovered/Resolved]
  - Off label use [Unknown]
  - Intentional product use issue [Unknown]
  - Off label use [Unknown]
  - Inappropriate schedule of product administration [Unknown]

NARRATIVE: CASE EVENT DATE: 20220607
